FAERS Safety Report 10072091 (Version 4)
Quarter: 2014Q2

REPORT INFORMATION
  Report Type: Report from Study
  Country: AU (occurrence: AU)
  Receive Date: 20140411
  Receipt Date: 20140512
  Transmission Date: 20141212
  Serious: Yes (Hospitalization, Other)
  Sender: FDA-Public Use
  Company Number: AU-ROCHE-1377997

PATIENT
  Age: 64 Year
  Sex: Female
  Weight: 97.5 kg

DRUGS (1)
  1. ACTEMRA [Suspect]
     Indication: RHEUMATOID ARTHRITIS
     Dosage: RECOMENDED DOSE: 8 MG/KG
     Route: 042
     Dates: start: 20110727

REACTIONS (4)
  - Dyspnoea [Unknown]
  - Lower respiratory tract infection [Recovered/Resolved]
  - Troponin increased [Unknown]
  - Nasopharyngitis [Unknown]
